FAERS Safety Report 5929570-9 (Version None)
Quarter: 2008Q4

REPORT INFORMATION
  Report Type: 
  Country: None (occurrence: None)
  Receive Date: 20081024
  Receipt Date: 20081014
  Transmission Date: 20090506
  Serious: Yes (Hospitalization, Disabling)
  Sender: FDA-Public Use
  Company Number: US-MERCK-0705USA01535

PATIENT
  Age: 64 Year
  Sex: Female
  Weight: 104 kg

DRUGS (6)
  1. FOSAMAX [Suspect]
     Indication: OSTEOPOROSIS
     Route: 048
     Dates: start: 19990701, end: 20060501
  2. FOSAMAX [Suspect]
     Route: 048
     Dates: start: 20050701
  3. FOSAMAX [Suspect]
     Route: 048
     Dates: start: 19990701
  4. LEVOTHYROXINE SODIUM [Concomitant]
     Indication: THYROID DISORDER
     Route: 065
     Dates: start: 19800101
  5. KLOR-CON [Concomitant]
     Indication: BLOOD POTASSIUM
     Route: 065
     Dates: start: 19700101
  6. [THERAPY UNSPECIFIED] [Concomitant]
     Route: 065
     Dates: start: 19700101

REACTIONS (28)
  - ABDOMINAL INJURY [None]
  - ANAEMIA OF CHRONIC DISEASE [None]
  - ANXIETY [None]
  - BLOOD CHOLESTEROL INCREASED [None]
  - BRADYCARDIA [None]
  - BRONCHITIS [None]
  - CARDIAC FAILURE CONGESTIVE [None]
  - CENTRAL LINE INFECTION [None]
  - DEHYDRATION [None]
  - DEPRESSION [None]
  - ENCEPHALOPATHY [None]
  - ENTEROCOCCAL INFECTION [None]
  - GASTROINTESTINAL STOMA COMPLICATION [None]
  - HYPERCALCAEMIA [None]
  - INFLAMMATION [None]
  - JAW DISORDER [None]
  - MUSCULOSKELETAL DISCOMFORT [None]
  - NEPHROGENIC ANAEMIA [None]
  - NEUROPATHY PERIPHERAL [None]
  - OSTEOMYELITIS [None]
  - OSTEONECROSIS [None]
  - PANCYTOPENIA [None]
  - PLEURAL EFFUSION [None]
  - PSORIASIS [None]
  - PULMONARY EMBOLISM [None]
  - RENAL FAILURE [None]
  - SKIN REACTION [None]
  - URINARY TRACT INFECTION [None]
